FAERS Safety Report 6058603-7 (Version None)
Quarter: 2009Q1

REPORT INFORMATION
  Report Type: 
  Country: None (occurrence: None)
  Receive Date: 20090130
  Receipt Date: 20090119
  Transmission Date: 20090719
  Serious: Yes (Hospitalization, Other)
  Sender: FDA-Public Use
  Company Number: DE-BAYER-200911777GPV

PATIENT
  Age: 22 Year
  Sex: Female

DRUGS (1)
  1. DROSPIRENONE AND ETHINYL ESTRADIOL [Suspect]
     Indication: ORAL CONTRACEPTION
     Route: 048
     Dates: start: 20020801, end: 20070501

REACTIONS (6)
  - COUGH [None]
  - FLANK PAIN [None]
  - HAEMOPTYSIS [None]
  - PLEURISY [None]
  - PNEUMONIA [None]
  - PULMONARY EMBOLISM [None]
